FAERS Safety Report 18333162 (Version 5)
Quarter: 2021Q3

REPORT INFORMATION
  Report Type: Report from Study
  Country: None (occurrence: NL)
  Receive Date: 20200930
  Receipt Date: 20210917
  Transmission Date: 20211014
  Serious: Yes (Hospitalization)
  Sender: FDA-Public Use
  Company Number: NL-ABBVIE-19K-114-2978002-00

PATIENT
  Age: 60 Year
  Sex: Male

DRUGS (11)
  1. RIVASTIGMINE. [Suspect]
     Active Substance: RIVASTIGMINE
     Dosage: DOSE DECREASES
     Route: 065
  2. DUODOPA [Suspect]
     Active Substance: CARBIDOPA\LEVODOPA
     Dosage: MD: 9.0 ML, CD: 2.3 ML/H, ED: 2.0 ML?REMAINS 16 HRS
     Route: 050
  3. REQUIP [Concomitant]
     Active Substance: ROPINIROLE HYDROCHLORIDE
     Indication: PRODUCT USED FOR UNKNOWN INDICATION
  4. DUODOPA [Suspect]
     Active Substance: CARBIDOPA\LEVODOPA
     Dosage: MD:9.0ML, CD:2.3ML/H, ED:2.0ML?REMAINS 16 HRS
     Route: 050
  5. MADOPAR [Concomitant]
     Active Substance: BENSERAZIDE HYDROCHLORIDE\LEVODOPA
     Indication: PARKINSON^S DISEASE
     Dosage: WHEN NEEDED
  6. DUODOPA [Suspect]
     Active Substance: CARBIDOPA\LEVODOPA
     Indication: PARKINSON^S DISEASE
     Dosage: MD 8.2 CD 2.0 ED 2.0 (16 HOURS)
     Route: 050
     Dates: start: 20191015, end: 201910
  7. RIVASTIGMINE. [Suspect]
     Active Substance: RIVASTIGMINE
     Indication: PRODUCT USED FOR UNKNOWN INDICATION
     Route: 065
  8. ROPINIROL [Concomitant]
     Active Substance: ROPINIROLE
     Indication: PARKINSON^S DISEASE
     Dosage: IN THE MORNING
  9. DUODOPA [Suspect]
     Active Substance: CARBIDOPA\LEVODOPA
     Dosage: INCREASED THE CONTINUOUS DOSE
     Route: 050
     Dates: start: 201910
  10. ROPINIROL [Concomitant]
     Active Substance: ROPINIROLE
  11. MACROGOL [Concomitant]
     Active Substance: POLYETHYLENE GLYCOLS
     Indication: ABNORMAL FAECES

REACTIONS (44)
  - Dysstasia [Not Recovered/Not Resolved]
  - Altered visual depth perception [Not Recovered/Not Resolved]
  - Urinary incontinence [Not Recovered/Not Resolved]
  - Hallucination [Recovered/Resolved]
  - Balance disorder [Not Recovered/Not Resolved]
  - Cognitive disorder [Not Recovered/Not Resolved]
  - Speech disorder [Recovering/Resolving]
  - Memory impairment [Not Recovered/Not Resolved]
  - Feeling abnormal [Not Recovered/Not Resolved]
  - Arrhythmia [Unknown]
  - Nocturia [Not Recovered/Not Resolved]
  - Pyrexia [Unknown]
  - Weight decreased [Recovered/Resolved]
  - Stoma site pain [Recovered/Resolved]
  - Fall [Not Recovered/Not Resolved]
  - Anxiety [Recovered/Resolved]
  - Unevaluable event [Not Recovered/Not Resolved]
  - Muscle rigidity [Recovered/Resolved]
  - Stoma site hypersensitivity [Not Recovered/Not Resolved]
  - Taste disorder [Not Recovered/Not Resolved]
  - Inappropriate schedule of product administration [Not Recovered/Not Resolved]
  - Tremor [Unknown]
  - Fatigue [Not Recovered/Not Resolved]
  - Therapeutic product effect incomplete [Recovered/Resolved]
  - Hallucination, visual [Recovered/Resolved]
  - Parkinson^s disease [Not Recovered/Not Resolved]
  - Abnormal dreams [Recovered/Resolved]
  - Freezing phenomenon [Not Recovered/Not Resolved]
  - Hyperphagia [Not Recovered/Not Resolved]
  - Muscle rigidity [Not Recovered/Not Resolved]
  - Tension [Not Recovered/Not Resolved]
  - Restlessness [Not Recovered/Not Resolved]
  - On and off phenomenon [Not Recovered/Not Resolved]
  - Middle insomnia [Recovered/Resolved]
  - Dyskinesia [Not Recovered/Not Resolved]
  - Confusional state [Recovered/Resolved]
  - Bradykinesia [Not Recovered/Not Resolved]
  - Stoma site pain [Unknown]
  - Device issue [Unknown]
  - Abnormal dreams [Not Recovered/Not Resolved]
  - Medical device pain [Recovered/Resolved]
  - Binge drinking [Not Recovered/Not Resolved]
  - Bladder disorder [Not Recovered/Not Resolved]
  - Pollakiuria [Unknown]

NARRATIVE: CASE EVENT DATE: 201910
